FAERS Safety Report 6092940-5 (Version None)
Quarter: 2009Q1

REPORT INFORMATION
  Report Type: 
  Country: None (occurrence: None)
  Receive Date: 20090225
  Receipt Date: 20090218
  Transmission Date: 20090719
  Serious: Yes (Hospitalization)
  Sender: FDA-Public Use
  Company Number: US-GILEAD-2009-0020388

PATIENT
  Sex: Male
  Weight: 75.046 kg

DRUGS (15)
  1. LETAIRIS [Suspect]
     Indication: PULMONARY ARTERIAL HYPERTENSION
     Route: 048
     Dates: start: 20090109
  2. SODIUM CHLORIDE [Concomitant]
  3. REMODULIN [Concomitant]
  4. BACTRIM [Concomitant]
  5. TRAZODONE HCL [Concomitant]
  6. MEGACE [Concomitant]
  7. PREDNISONE [Concomitant]
  8. REVATIO [Concomitant]
  9. OXYCODONE [Concomitant]
  10. ZOFRAN [Concomitant]
  11. OXANDROLONE [Concomitant]
  12. LEXAPRO [Concomitant]
  13. PROMETHAZINE [Concomitant]
  14. CYCLOSPORINE [Concomitant]
  15. ASPIRIN [Concomitant]

REACTIONS (3)
  - DEHYDRATION [None]
  - LIVER DISORDER [None]
  - NAUSEA [None]
